FAERS Safety Report 5888003-1 (Version None)
Quarter: 2008Q3

REPORT INFORMATION
  Report Type: 
  Country: None (occurrence: None)
  Receive Date: 20080918
  Receipt Date: 20080916
  Transmission Date: 20090109
  Serious: Yes (Hospitalization, Other)
  Sender: FDA-Public Use
  Company Number: US-GENENTECH-267540

PATIENT
  Sex: Female

DRUGS (1)
  1. RAPTIVA [Suspect]
     Indication: PSORIASIS
     Dosage: 106 MG, 1/WEEK
     Route: 058
     Dates: end: 20080701

REACTIONS (2)
  - ANAEMIA [None]
  - RENAL FAILURE ACUTE [None]
